FAERS Safety Report 7588399-9 (Version None)
Quarter: 2011Q3

REPORT INFORMATION
  Report Type: 
  Country: None (occurrence: None)
  Receive Date: 20110705
  Receipt Date: 20110628
  Transmission Date: 20111222
  Serious: Yes (Life-Threatening, Hospitalization, Other)
  Sender: FDA-Public Use
  Company Number: US-US-EMD SERONO, INC.-237168K09USA

PATIENT
  Sex: Female
  Weight: 66 kg

DRUGS (4)
  1. ADVIL LIQUI-GELS [Concomitant]
     Indication: PREMEDICATION
     Route: 065
  2. REBIF [Suspect]
     Indication: MULTIPLE SCLEROSIS
     Route: 058
     Dates: start: 20070627
  3. MULTIPLE MEDICATION [Concomitant]
     Route: 065
  4. LASIX [Concomitant]
     Indication: FLUID RETENTION
     Dates: start: 19910101

REACTIONS (5)
  - RENAL DISORDER [None]
  - COMPLEX REGIONAL PAIN SYNDROME [None]
  - RESPIRATORY ARREST [None]
  - WRIST FRACTURE [None]
  - SYNCOPE [None]
